FAERS Safety Report 17843633 (Version 3)
Quarter: 2020Q2

REPORT INFORMATION
  Report Type: Report from Study
  Country: BR (occurrence: BR)
  Receive Date: 20200531
  Receipt Date: 20200612
  Transmission Date: 20200714
  Serious: No
  Sender: FDA-Public Use
  Company Number: NVSC2020BR149046

PATIENT
  Sex: Male
  Weight: 76 kg

DRUGS (8)
  1. FUROSEMIDE. [Concomitant]
     Active Substance: FUROSEMIDE
     Indication: CARDIAC DISORDER
     Dosage: 1 DF, QD (STARTED MANY YEARS AGO)
     Route: 065
  2. OMEPRAZOLE. [Concomitant]
     Active Substance: OMEPRAZOLE
     Indication: OESOPHAGITIS
     Dosage: 1 DF, QD (STARTED MANY YEARS AGO)
     Route: 048
  3. SIMVASTATIN. [Concomitant]
     Active Substance: SIMVASTATIN
     Indication: BLOOD CHOLESTEROL INCREASED
     Dosage: 1 DF, QD (STARTED MANY YEARS AGO)
     Route: 065
  4. COSENTYX [Suspect]
     Active Substance: SECUKINUMAB
     Indication: PSORIASIS
     Dosage: 300 MG (STARTED AROUND 1 YEAR; 2 AMPOULE OF 150 MG)
     Route: 058
     Dates: start: 20200501
  5. LOSARTAN. [Concomitant]
     Active Substance: LOSARTAN
     Indication: HYPERTENSION
     Dosage: 1 DF, BID (STARTED MANY YEARS AGO)
     Route: 048
  6. HIDROXYUREA [Concomitant]
     Indication: PRODUCT USED FOR UNKNOWN INDICATION
     Dosage: 2 DF, QD (STARTED MANY YEARS AGO)
     Route: 065
  7. CARVEDILOL. [Concomitant]
     Active Substance: CARVEDILOL
     Indication: CARDIAC DISORDER
     Dosage: 1 DF, Q12H (STARTED MANY YEARS AGO)
     Route: 048
  8. SERETIDE [Concomitant]
     Active Substance: FLUTICASONE PROPIONATE\SALMETEROL XINAFOATE
     Indication: ASTHMA
     Dosage: 2 JETS (STARTED MANY YEARS AGO)
     Route: 055

REACTIONS (10)
  - Blood blister [Recovered/Resolved]
  - Psoriasis [Not Recovered/Not Resolved]
  - Nuchal rigidity [Recovered/Resolved]
  - Erythema [Recovering/Resolving]
  - Nail bed inflammation [Not Recovered/Not Resolved]
  - Arthritis [Not Recovered/Not Resolved]
  - Blister [Recovered/Resolved]
  - Wound secretion [Recovering/Resolving]
  - Onychomadesis [Recovering/Resolving]
  - Pain in extremity [Recovering/Resolving]
